FAERS Safety Report 23217027 (Version 1)
Quarter: 2023Q4

REPORT INFORMATION
  Report Type: Spontaneous
  Country: US (occurrence: US)
  Receive Date: 20231122
  Receipt Date: 20231122
  Transmission Date: 20240110
  Serious: No
  Sender: FDA-Public Use
  Company Number: US-TAKEDA-2023TUS112367

PATIENT
  Sex: Male
  Weight: 108.84 kg

DRUGS (1)
  1. VYVANSE [Suspect]
     Active Substance: LISDEXAMFETAMINE DIMESYLATE
     Indication: Attention deficit hyperactivity disorder
     Dosage: 50 MILLIGRAM, BID
     Route: 065
     Dates: start: 2019

REACTIONS (3)
  - Stress at work [Unknown]
  - Product availability issue [Unknown]
  - Product prescribing error [Unknown]
